FAERS Safety Report 4725280-4 (Version None)
Quarter: 2005Q3

REPORT INFORMATION
  Report Type: 
  Country: None (occurrence: None)
  Receive Date: 20050725
  Receipt Date: 20050711
  Transmission Date: 20060218
  Serious: Yes (Hospitalization)
  Sender: FDA-Public Use
  Company Number: 2005100204

PATIENT
  Sex: Female

DRUGS (10)
  1. DETROL LA [Suspect]
     Indication: URINARY INCONTINENCE
     Dosage: 4MG (4 MG 1 IN 1 D) ORAL
     Route: 048
     Dates: start: 20030101
  2. NEURONTIN [Concomitant]
  3. RISPERDAL [Concomitant]
  4. ARICEPT [Concomitant]
  5. SPIRIVA ^PFIZER^ (TIOTROPIUM BROMIDE) [Concomitant]
  6. PLAVIX [Concomitant]
  7. ACETYLSALICYLIC ACID SRT [Concomitant]
  8. WELLBUTRIN XL [Concomitant]
  9. HYDROCHLOROTHIAZIDE [Concomitant]
  10. TYLENOL [Concomitant]

REACTIONS (4)
  - CARDIAC DISORDER [None]
  - CORONARY ARTERY DISEASE [None]
  - DRUG INEFFECTIVE [None]
  - MUSCLE ATROPHY [None]
